FAERS Safety Report 6337567-2 (Version None)
Quarter: 2009Q3

REPORT INFORMATION
  Report Type: 
  Country: None (occurrence: None)
  Receive Date: 20090902
  Receipt Date: 20090828
  Transmission Date: 20100115
  Serious: No
  Sender: FDA-Public Use
  Company Number: US-JNJFOC-20090900404

PATIENT
  Sex: Female
  Weight: 59.88 kg

DRUGS (4)
  1. DURAGESIC-100 [Suspect]
     Indication: ARTHROPATHY
     Route: 062
  2. SYNTHROID [Concomitant]
     Indication: THYROID DISORDER
     Route: 048
  3. METHOCARBAMOL [Concomitant]
     Indication: PAIN
     Route: 048
  4. LYRICA [Concomitant]
     Indication: PAIN
     Route: 048

REACTIONS (3)
  - APPLICATION SITE IRRITATION [None]
  - DRUG ADMINISTERED AT INAPPROPRIATE SITE [None]
  - WRONG TECHNIQUE IN DRUG USAGE PROCESS [None]
